FAERS Safety Report 10185089 (Version 1)
Quarter: 2014Q2

REPORT INFORMATION
  Report Type: Spontaneous
  Country: GB (occurrence: GB)
  Receive Date: 20140521
  Receipt Date: 20140521
  Transmission Date: 20141212
  Serious: Yes (Hospitalization, Other)
  Sender: FDA-Public Use
  Company Number: PHHY2014GB061127

PATIENT
  Age: 23 Year
  Sex: Female

DRUGS (6)
  1. DOXYCYCLINE [Suspect]
     Indication: PELVIC INFLAMMATORY DISEASE
     Dosage: 100 MG, BID
     Route: 048
     Dates: start: 20140325, end: 20140329
  2. DOMPERIDONE [Concomitant]
     Indication: NAUSEA
  3. EPILIM CHRONO [Concomitant]
  4. METRONIDAZOLE [Concomitant]
  5. OMEPRAZOLE [Concomitant]
     Indication: NAUSEA
     Dosage: 20 MG, UNK
  6. CITALOPRAM [Concomitant]

REACTIONS (3)
  - Pain [Unknown]
  - Circumstance or information capable of leading to medication error [Unknown]
  - Oesophageal ulcer [Unknown]
